FAERS Safety Report 5743605-8 (Version None)
Quarter: 2008Q2

REPORT INFORMATION
  Report Type: 
  Country: None (occurrence: None)
  Receive Date: 20080516
  Receipt Date: 20080505
  Transmission Date: 20081010
  Serious: Yes (Other)
  Sender: FDA-Public Use
  Company Number: GXKR2008AU04172

PATIENT
  Sex: Female

DRUGS (1)
  1. SOTAHEXAL (NGX)(SOTALOL) TABLET, 80MG [Suspect]
     Dosage: ORAL
     Route: 048

REACTIONS (13)
  - CHEST PAIN [None]
  - DYSGEUSIA [None]
  - DYSPEPSIA [None]
  - DYSPNOEA [None]
  - HEPATIC PAIN [None]
  - HEPATOMEGALY [None]
  - HYPERACUSIS [None]
  - INSOMNIA [None]
  - LIVER DISORDER [None]
  - MUSCULOSKELETAL PAIN [None]
  - NIGHTMARE [None]
  - PAROSMIA [None]
  - VOMITING [None]
